FAERS Safety Report 7021669-1 (Version None)
Quarter: 2010Q3

REPORT INFORMATION
  Report Type: 
  Country: None (occurrence: None)
  Receive Date: 20100928
  Receipt Date: 20100913
  Transmission Date: 20110219
  Serious: Yes (Death)
  Sender: FDA-Public Use
  Company Number: 2010TR0033

PATIENT
  Sex: Female

DRUGS (1)
  1. ORFADIN [Suspect]
     Indication: TYROSINAEMIA
     Dosage: 2 MG/KG (2 MG/KG, 1 IN 1 D)
     Dates: start: 20100330

REACTIONS (1)
  - DEATH [None]
